FAERS Safety Report 19229854 (Version 3)
Quarter: 2021Q3

REPORT INFORMATION
  Report Type: Spontaneous
  Country: US (occurrence: US)
  Receive Date: 20210506
  Receipt Date: 20210903
  Transmission Date: 20211014
  Serious: Yes (Other)
  Sender: FDA-Public Use
  Company Number: US-ALLERGAN-2117187US

PATIENT
  Sex: Female

DRUGS (3)
  1. DICYCLOMINE HCL ? BP [Suspect]
     Active Substance: DICYCLOMINE HYDROCHLORIDE
     Indication: MUSCLE SPASMS
     Dosage: UNK, RECEIVED A TOTAL 5 DOSES
     Route: 065
  2. METRONIDAZOLE. [Concomitant]
     Active Substance: METRONIDAZOLE
  3. CEFTRIAXONE. [Suspect]
     Active Substance: CEFTRIAXONE
     Indication: COLITIS

REACTIONS (5)
  - Disturbance in attention [Recovered/Resolved]
  - Hallucination, visual [Recovered/Resolved]
  - Disorientation [Recovered/Resolved]
  - Lethargy [Recovered/Resolved]
  - Delirium [Recovered/Resolved]
